FAERS Safety Report 14120184 (Version 2)
Quarter: 2018Q2

REPORT INFORMATION
  Report Type: Spontaneous
  Country: FR (occurrence: FR)
  Receive Date: 20171024
  Receipt Date: 20180524
  Transmission Date: 20180711
  Serious: Yes (Other)
  Sender: FDA-Public Use
  Company Number: FR-MERCK KGAA-2031269

PATIENT
  Age: 34 Year
  Sex: Female

DRUGS (1)
  1. NOVOTHYROX [Suspect]
     Active Substance: LEVOTHYROXINE SODIUM
     Indication: HYPOTHYROIDISM
     Route: 048

REACTIONS (18)
  - Palpitations [Not Recovered/Not Resolved]
  - Libido decreased [None]
  - Paraesthesia [None]
  - Dizziness [Not Recovered/Not Resolved]
  - Insomnia [Not Recovered/Not Resolved]
  - Stress [None]
  - Fatigue [None]
  - Negative thoughts [None]
  - Self esteem decreased [None]
  - Headache [Not Recovered/Not Resolved]
  - Pain [None]
  - Myalgia [Not Recovered/Not Resolved]
  - Gait disturbance [None]
  - Loss of personal independence in daily activities [None]
  - Irritability [None]
  - Somnolence [None]
  - Palpitations [None]
  - Fibromyalgia [None]

NARRATIVE: CASE EVENT DATE: 201707
